FAERS Safety Report 11615535 (Version 1)
Quarter: 2015Q4

REPORT INFORMATION
  Report Type: Report from Study
  Country: CO (occurrence: CO)
  Receive Date: 20151009
  Receipt Date: 20151009
  Transmission Date: 20160304
  Serious: Yes (Hospitalization)
  Sender: FDA-Public Use
  Company Number: CO-BIOGENIDEC-2015BI136170

PATIENT
  Age: 35 Year
  Sex: Male

DRUGS (1)
  1. AVONEX [Suspect]
     Active Substance: INTERFERON BETA-1A
     Indication: PRODUCT USED FOR UNKNOWN INDICATION

REACTIONS (4)
  - Central nervous system lesion [Unknown]
  - Arthralgia [Unknown]
  - Headache [Unknown]
  - Hypotonia [Unknown]

NARRATIVE: CASE EVENT DATE: 201509
